FAERS Safety Report 13032781 (Version 1)
Quarter: 2016Q4

REPORT INFORMATION
  Report Type: Report from Study
  Country: US (occurrence: US)
  Receive Date: 20161215
  Receipt Date: 20161215
  Transmission Date: 20170207
  Serious: Yes (Other)
  Sender: FDA-Public Use
  Company Number: US-ACTELION-A-NJ2016-146710

PATIENT
  Age: 52 Year
  Sex: Female

DRUGS (2)
  1. OPSUMIT [Suspect]
     Active Substance: MACITENTAN
     Indication: PULMONARY HYPERTENSION
     Dosage: 10 MG, QD
     Route: 048
     Dates: start: 20160304
  2. TYVASO [Concomitant]
     Active Substance: TREPROSTINIL

REACTIONS (5)
  - Lower respiratory tract infection [Unknown]
  - Upper limb fracture [Unknown]
  - Multiple allergies [Unknown]
  - Physical disability [Unknown]
  - Cough [Unknown]

NARRATIVE: CASE EVENT DATE: 20161127
